FAERS Safety Report 6678093-0 (Version None)
Quarter: 2010Q2

REPORT INFORMATION
  Report Type: 
  Country: None (occurrence: None)
  Receive Date: 20100409
  Receipt Date: 20100409
  Transmission Date: 20101027
  Serious: No
  Sender: FDA-Public Use
  Company Number: None

PATIENT
  Age: 62 Year
  Sex: Female
  Weight: 63.5036 kg

DRUGS (1)
  1. ACTONEL [Suspect]
     Indication: BONE DENSITY ABNORMAL
     Dosage: 1 TABLET MONTHLY MONTHLY
     Dates: start: 20090601, end: 20100301

REACTIONS (2)
  - FIBROMYALGIA [None]
  - OSTEOPOROSIS [None]
